FAERS Safety Report 6012516-5 (Version None)
Quarter: 2008Q4

REPORT INFORMATION
  Report Type: 
  Country: None (occurrence: None)
  Receive Date: 20081218
  Receipt Date: 20081212
  Transmission Date: 20090506
  Serious: Yes (Hospitalization)
  Sender: FDA-Public Use
  Company Number: JP-ROXANE LABORATORIES, INC.-2008-RO-00409RO

PATIENT
  Age: 24 Year
  Sex: Male

DRUGS (6)
  1. FLUCONAZOLE [Suspect]
     Indication: PNEUMONIA CRYPTOCOCCAL
     Dosage: 400MG
     Route: 048
  2. ITRACONAZOLE [Suspect]
     Indication: PNEUMONIA CRYPTOCOCCAL
     Dosage: 200MG
     Route: 042
  3. AMPHOTERICIN B [Suspect]
     Indication: PNEUMONIA CRYPTOCOCCAL
     Dosage: 200MG
     Route: 042
  4. AMPHOTERICIN B [Suspect]
     Dosage: 200MG
     Route: 042
  5. VORICONAZOLE [Concomitant]
     Indication: PNEUMONIA CRYPTOCOCCAL
     Dosage: 400MG
     Route: 048
  6. FLUCYTOSINE [Concomitant]
     Indication: PNEUMONIA CRYPTOCOCCAL
     Dosage: 6G
     Route: 048

REACTIONS (5)
  - BACK PAIN [None]
  - PLEURAL EFFUSION [None]
  - PLEURISY [None]
  - PNEUMONIA CRYPTOCOCCAL [None]
  - PYREXIA [None]
